FAERS Safety Report 17689657 (Version 1)
Quarter: 2020Q2

REPORT INFORMATION
  Report Type: Spontaneous
  Country: US (occurrence: US)
  Receive Date: 20200420
  Receipt Date: 20200420
  Transmission Date: 20200714
  Serious: No
  Sender: FDA-Public Use
  Company Number: None

PATIENT
  Sex: Female

DRUGS (5)
  1. HEPARIN FLUSH UNIT/ML5ML [Concomitant]
  2. SALINE FLUSH 10 ML [Concomitant]
  3. VABOMERE [Suspect]
     Active Substance: MEROPENEM\VABORBACTAM
     Indication: CYSTIC FIBROSIS
     Dosage: ?          OTHER ROUTE:IV?
     Dates: start: 20200409
  4. ZERBAXA [Suspect]
     Active Substance: CEFTOLOZANE SULFATE\TAZOBACTAM SODIUM
     Indication: CYSTIC FIBROSIS
     Dosage: ?          OTHER ROUTE:IV?
     Dates: start: 20200409
  5. STERILE SALINE FLUSH 10 ML [Concomitant]

REACTIONS (2)
  - Rash [None]
  - Swelling [None]
